FAERS Safety Report 8005799-3 (Version None)
Quarter: 2011Q4

REPORT INFORMATION
  Report Type: 
  Country: None (occurrence: None)
  Receive Date: 20111223
  Receipt Date: 20111215
  Transmission Date: 20120403
  Serious: Yes (Hospitalization)
  Sender: FDA-Public Use
  Company Number: FR-ROCHE-1023315

PATIENT
  Sex: Female

DRUGS (5)
  1. ACTEMRA [Suspect]
     Indication: RHEUMATOID ARTHRITIS
     Dates: start: 20101029, end: 20110428
  2. PREDNISONE TAB [Concomitant]
     Dosage: USED FOR CORTICOTHERAPY
     Dates: start: 20101014
  3. PREDNISONE TAB [Concomitant]
  4. PREDNISONE TAB [Concomitant]
     Dates: start: 20110428
  5. PREDNISONE TAB [Concomitant]
     Dates: start: 20110907

REACTIONS (3)
  - AGRANULOCYTOSIS [None]
  - ERYSIPELAS [None]
  - ULCER [None]
